FAERS Safety Report 5448646-6 (Version None)
Quarter: 2007Q3

REPORT INFORMATION
  Report Type: 
  Country: None (occurrence: None)
  Receive Date: 20070907
  Receipt Date: 20070907
  Transmission Date: 20080115
  Serious: No
  Sender: FDA-Public Use
  Company Number: None

PATIENT
  Sex: Female
  Weight: 60 kg

DRUGS (1)
  1. OPTIRAY 320 [Suspect]
     Indication: COMPUTERISED TOMOGRAM ABDOMEN
     Dosage: 125 MLS
     Dates: start: 20070827, end: 20070827

REACTIONS (4)
  - EYE SWELLING [None]
  - FACIAL PALSY [None]
  - OCULAR HYPERAEMIA [None]
  - URTICARIA [None]
